FAERS Safety Report 5391469-7 (Version None)
Quarter: 2007Q3

REPORT INFORMATION
  Report Type: 
  Country: None (occurrence: None)
  Receive Date: 20070719
  Receipt Date: 20070710
  Transmission Date: 20080115
  Serious: Yes (Hospitalization)
  Sender: FDA-Public Use
  Company Number: FR-ASTRAZENECA-2007SE01774

PATIENT
  Age: 80 Year
  Sex: Female

DRUGS (1)
  1. COKENZEN [Suspect]
     Indication: HYPERTENSION
     Dosage: 8/12.5 MG
     Route: 048

REACTIONS (3)
  - FALL [None]
  - RENAL FAILURE [None]
  - RHABDOMYOLYSIS [None]
